FAERS Safety Report 17594898 (Version 1)
Quarter: 2020Q1

REPORT INFORMATION
  Report Type: Spontaneous
  Country: US (occurrence: US)
  Receive Date: 20200328
  Receipt Date: 20200328
  Transmission Date: 20200409
  Serious: No
  Sender: FDA-Public Use
  Company Number: US-GLAXOSMITHKLINE-US2020051841

PATIENT
  Age: 74 Year
  Sex: Male

DRUGS (1)
  1. ABREVA [Suspect]
     Active Substance: DOCOSANOL
     Indication: ORAL HERPES
     Dosage: UNK
     Dates: start: 20200318, end: 20200323

REACTIONS (5)
  - Application site swelling [Unknown]
  - Application site infection [Unknown]
  - Application site vesicles [Unknown]
  - Application site pain [Unknown]
  - Application site erythema [Unknown]

NARRATIVE: CASE EVENT DATE: 20200323
